FAERS Safety Report 9714045 (Version 1)
Quarter: 2013Q4

REPORT INFORMATION
  Report Type: Spontaneous
  Country: US (occurrence: US)
  Receive Date: 20131126
  Receipt Date: 20131126
  Transmission Date: 20140711
  Serious: No
  Sender: FDA-Public Use
  Company Number: US-GILEAD-2008-0018742

PATIENT
  Sex: Female
  Weight: 42.18 kg

DRUGS (8)
  1. LETAIRIS [Suspect]
     Indication: PULMONARY ARTERIAL HYPERTENSION
     Route: 048
     Dates: start: 20080919
  2. VIAGRA [Concomitant]
  3. XOPENEX [Concomitant]
  4. ALBUTEROL [Concomitant]
  5. SPIRIVA [Concomitant]
  6. LASIX [Concomitant]
  7. CITALOPRAM [Concomitant]
  8. PREVACID [Concomitant]

REACTIONS (1)
  - Oedema [None]
